FAERS Safety Report 25663199 (Version 1)
Quarter: 2025Q3

REPORT INFORMATION
  Report Type: Spontaneous
  Country: GB (occurrence: GB)
  Receive Date: 20250811
  Receipt Date: 20250811
  Transmission Date: 20251021
  Serious: Yes (Other)
  Sender: NOVO NORDISK
  Company Number: None

PATIENT
  Age: 36 Year
  Sex: Male
  Weight: 121 kg

DRUGS (1)
  1. WEGOVY [Suspect]
     Active Substance: SEMAGLUTIDE
     Indication: Weight control
     Dosage: 1 MG, QW
     Dates: start: 20250501

REACTIONS (4)
  - Attention deficit hyperactivity disorder [Recovering/Resolving]
  - Diabetes mellitus [Recovering/Resolving]
  - Depression [Not Recovered/Not Resolved]
  - Fatigue [Recovering/Resolving]
